FAERS Safety Report 4731594-4 (Version None)
Quarter: 2005Q3

REPORT INFORMATION
  Report Type: 
  Country: None (occurrence: None)
  Receive Date: 20050722
  Receipt Date: 20050519
  Transmission Date: 20060218
  Serious: Yes (Other)
  Sender: FDA-Public Use
  Company Number: USA-2005-0020321

PATIENT
  Age: 62 Year
  Sex: Male
  Weight: 117.9 kg

DRUGS (1)
  1. PALLADONE [Suspect]
     Indication: PAIN
     Dosage: 32 MG, Q24H
     Dates: start: 20050218, end: 20050223

REACTIONS (5)
  - ASTHMA [None]
  - DYSPNOEA [None]
  - THROAT TIGHTNESS [None]
  - UNDERDOSE [None]
  - WHEEZING [None]
